FAERS Safety Report 8762285 (Version 1)
Quarter: 2012Q4

REPORT INFORMATION
  Report Type: 
  Country: US (occurrence: US)
  Receive Date: 20120829
  Receipt Date: 20120829
  Transmission Date: 20130627
  Serious: Yes (Other)
  Sender: FDA-Public Use
  Company Number: US-PFIZER INC-2012207934

PATIENT
  Age: 46 Year
  Sex: Female
  Weight: 77.1 kg

DRUGS (2)
  1. EFFEXOR XR [Suspect]
     Indication: ANXIETY
     Dosage: 75 mg, 1x/day
     Route: 048
     Dates: start: 200407
  2. GLUCOPHAGE [Concomitant]
     Dosage: UNK

REACTIONS (8)
  - Non-alcoholic steatohepatitis [Unknown]
  - Fatty liver alcoholic [Unknown]
  - Wrong technique in drug usage process [Unknown]
  - Withdrawal syndrome [Not Recovered/Not Resolved]
  - Fatigue [Not Recovered/Not Resolved]
  - Dizziness [Not Recovered/Not Resolved]
  - Malaise [Not Recovered/Not Resolved]
  - Headache [Not Recovered/Not Resolved]
